FAERS Safety Report 10173518 (Version 1)
Quarter: 2014Q2

REPORT INFORMATION
  Report Type: Spontaneous
  Country: US (occurrence: None)
  Receive Date: 20140514
  Receipt Date: 20140514
  Transmission Date: 20141212
  Serious: No
  Sender: FDA-Public Use
  Company Number: None

PATIENT
  Age: 5 Year
  Sex: Male
  Weight: 19.5 kg

DRUGS (2)
  1. TAMIFLU [Suspect]
     Indication: INFLUENZA
     Dosage: TAKE ONCE PER DAY ONCE DAILY TAKEN BY MOUTH
     Route: 048
  2. TAMIFLU [Suspect]
     Indication: PROPHYLAXIS
     Dosage: TAKE ONCE PER DAY ONCE DAILY TAKEN BY MOUTH
     Route: 048

REACTIONS (8)
  - Abnormal dreams [None]
  - Abnormal behaviour [None]
  - Crying [None]
  - Depression [None]
  - Enuresis [None]
  - Aggression [None]
  - Feeling abnormal [None]
  - Physical assault [None]
